FAERS Safety Report 11003258 (Version 1)
Quarter: 2015Q2

REPORT INFORMATION
  Report Type: Spontaneous
  Country: GB (occurrence: GB)
  Receive Date: 20150409
  Receipt Date: 20150409
  Transmission Date: 20150821
  Serious: Yes (Hospitalization)
  Sender: FDA-Public Use
  Company Number: GB-CIPLA LTD.-2015US02708

PATIENT

DRUGS (7)
  1. ACTAVIS UK ZOPICLONE [Suspect]
     Active Substance: ZOPICLONE
     Dosage: 7.5MG, AT NIGHT FOR 2 WEEKS
     Route: 048
     Dates: start: 20150228
  2. AMITRIPTYLINE [Suspect]
     Active Substance: AMITRIPTYLINE
     Dosage: 200 MG, QD
     Route: 048
  3. LAMOTRIGINE. [Suspect]
     Active Substance: LAMOTRIGINE
     Dosage: 125 MG, BID
     Route: 048
  4. OXYCONTIN [Suspect]
     Active Substance: OXYCODONE HYDROCHLORIDE
     Dosage: 80 MG, BID
     Route: 048
  5. AMITRIPTYLINE [Suspect]
     Active Substance: AMITRIPTYLINE
     Dosage: 50MG IN HIGH DEPENDENCY UNIT
  6. DULOXETINE [Suspect]
     Active Substance: DULOXETINE
     Dosage: 60 MG, QD IN THE MORNING
  7. LYRICA [Suspect]
     Active Substance: PREGABALIN
     Dosage: 225 MG, QD
     Route: 048

REACTIONS (1)
  - Loss of consciousness [Recovered/Resolved]
